FAERS Safety Report 4635753-0 (Version None)
Quarter: 2005Q2

REPORT INFORMATION
  Report Type: 
  Country: None (occurrence: None)
  Receive Date: 20050413
  Receipt Date: 20050407
  Transmission Date: 20051028
  Serious: Yes (Hospitalization)
  Sender: FDA-Public Use
  Company Number: 2005055565

PATIENT
  Age: 63 Year
  Sex: Male

DRUGS (4)
  1. TAHOR (ATORVASTATIN) [Suspect]
     Indication: ILL-DEFINED DISORDER
     Dosage: 1 IN 1 D, ORAL
     Route: 048
     Dates: end: 20050131
  2. OMEPRAZOLE [Suspect]
     Indication: ILL-DEFINED DISORDER
     Dosage: ORAL
     Route: 048
     Dates: end: 20050131
  3. CODEINE PHOSPHATE AND ACETAMINOPHEN [Suspect]
     Indication: ILL-DEFINED DISORDER
     Dates: end: 20050131
  4. DICLOFENAC SODIUM [Suspect]
     Indication: ILL-DEFINED DISORDER
     Dosage: 75 MG, ORAL
     Route: 048
     Dates: end: 20050131

REACTIONS (1)
  - HYPOKALAEMIA [None]
